FAERS Safety Report 8178189-0 (Version None)
Quarter: 2012Q1

REPORT INFORMATION
  Report Type: 
  Country: None (occurrence: None)
  Receive Date: 20120126
  Receipt Date: 20111212
  Transmission Date: 20120608
  Serious: Yes (Other)
  Sender: FDA-Public Use
  Company Number: PHEH2011US011459

PATIENT
  Age: 6 Year

DRUGS (1)
  1. AFINITOR [Suspect]
     Indication: CHOROID PLEXUS CARCINOMA

REACTIONS (3)
  - GENITAL INFECTION FUNGAL [None]
  - NEUTROPENIA [None]
  - MUCOSAL INFLAMMATION [None]
